FAERS Safety Report 24727854 (Version 1)
Quarter: 2024Q4

REPORT INFORMATION
  Report Type: Spontaneous
  Country: US (occurrence: US)
  Receive Date: 20241212
  Receipt Date: 20241212
  Transmission Date: 20250114
  Serious: No
  Sender: CALLIDITAS THERAPEUTICS AB
  Company Number: US-Calliditas-2024CAL02814

PATIENT
  Age: 60 Year
  Sex: Female

DRUGS (1)
  1. TARPEYO [Suspect]
     Active Substance: BUDESONIDE
     Indication: Nephritic syndrome
     Route: 048
     Dates: start: 202402

REACTIONS (2)
  - Hyperglycaemia [Unknown]
  - Off label use [Unknown]
